FAERS Safety Report 7621764-X (Version None)
Quarter: 2011Q3

REPORT INFORMATION
  Report Type: 
  Country: None (occurrence: None)
  Receive Date: 20110719
  Receipt Date: 20110706
  Transmission Date: 20111222
  Serious: Yes (Congenital Anomaly, Other)
  Sender: FDA-Public Use
  Company Number: DE-MYLANLABS-2011S1013842

PATIENT
  Age: 3 Month
  Sex: Male
  Weight: 3.48 kg

DRUGS (4)
  1. NORDETTE-28 [Suspect]
     Route: 064
  2. VALPROIC ACID [Suspect]
     Dosage: 1200 [MG/D ]
     Route: 064
  3. PROPRANOLOL [Suspect]
     Route: 064
  4. CLOZAPINE [Suspect]
     Dosage: 600 [MG/D ]
     Route: 064

REACTIONS (6)
  - HYPOTONIA NEONATAL [None]
  - RESPIRATORY DISORDER [None]
  - DYSMORPHISM [None]
  - CRYPTORCHISM [None]
  - RAYNAUD'S PHENOMENON [None]
  - MATERNAL EXPOSURE DURING PREGNANCY [None]
